FAERS Safety Report 6315727-4 (Version None)
Quarter: 2009Q3

REPORT INFORMATION
  Report Type: 
  Country: None (occurrence: None)
  Receive Date: 20090818
  Receipt Date: 20090810
  Transmission Date: 20100115
  Serious: Yes (Other)
  Sender: FDA-Public Use
  Company Number: CERZ-1000653

PATIENT
  Age: 55 Year
  Sex: Male
  Weight: 98 kg

DRUGS (5)
  1. CEREZYME [Suspect]
     Indication: GAUCHER'S DISEASE
     Dosage: 2200 U, Q2W, INTRAVENOUS
     Route: 042
     Dates: start: 19910911
  2. OXYCONTIN [Concomitant]
  3. IMMUNE GLOBULIN (HUMAN) [Concomitant]
  4. VALIUM (BENZOIC ACID, BENZYL ALCOHOL) [Concomitant]
  5. RANITIDINE [Concomitant]

REACTIONS (1)
  - FATIGUE [None]
